FAERS Safety Report 9707291 (Version 1)
Quarter: 2013Q4

REPORT INFORMATION
  Report Type: Spontaneous
  Country: US (occurrence: US)
  Receive Date: 20131125
  Receipt Date: 20131125
  Transmission Date: 20140711
  Serious: No
  Sender: FDA-Public Use
  Company Number: US-009507513-1311USA009527

PATIENT
  Age: 69 Year
  Sex: Male

DRUGS (2)
  1. PRINIVIL [Suspect]
     Indication: HYPERTENSION
     Dosage: UNK
     Route: 048
  2. WELLBUTRIN [Concomitant]

REACTIONS (3)
  - Flat affect [Recovering/Resolving]
  - Feeling abnormal [Recovering/Resolving]
  - Cognitive disorder [Recovering/Resolving]
